FAERS Safety Report 5429425-2 (Version None)
Quarter: 2007Q3

REPORT INFORMATION
  Report Type: 
  Country: None (occurrence: None)
  Receive Date: 20070829
  Receipt Date: 20070821
  Transmission Date: 20080115
  Serious: Yes (Other)
  Sender: FDA-Public Use
  Company Number: US-ROCHE-512574

PATIENT

DRUGS (1)
  1. BONIVA [Suspect]
     Indication: DRUG USE FOR UNKNOWN INDICATION
     Dosage: TOOK IT FOR 2 MONTHS
     Route: 065
     Dates: start: 20060401

REACTIONS (10)
  - ARTHRALGIA [None]
  - BONE PAIN [None]
  - FATIGUE [None]
  - HYPERTENSION [None]
  - NAUSEA [None]
  - NEOPLASM MALIGNANT [None]
  - OEDEMA [None]
  - RED BLOOD CELL SEDIMENTATION RATE INCREASED [None]
  - RHEUMATOID FACTOR INCREASED [None]
  - SKIN DISCOLOURATION [None]
